FAERS Safety Report 10467227 (Version 1)
Quarter: 2014Q3

REPORT INFORMATION
  Report Type: Spontaneous
  Country: JP (occurrence: JP)
  Receive Date: 20140922
  Receipt Date: 20140922
  Transmission Date: 20150326
  Serious: Yes (Hospitalization, Other)
  Sender: FDA-Public Use
  Company Number: PHHY2014JP122640

PATIENT
  Age: 39 Year
  Sex: Male

DRUGS (2)
  1. NEORAL [Suspect]
     Active Substance: CYCLOSPORINE
     Dosage: UNK UKN, UNK
  2. MYCOPHENOLATE MOFETIL. [Concomitant]
     Active Substance: MYCOPHENOLATE MOFETIL
     Dosage: UNK UKN, UNK

REACTIONS (4)
  - Hydronephrosis [Recovering/Resolving]
  - Urethral stenosis [Unknown]
  - Urinary tract infection [Unknown]
  - Pyrexia [Unknown]
